FAERS Safety Report 21153110 (Version 1)
Quarter: 2022Q3

REPORT INFORMATION
  Report Type: Spontaneous
  Country: US (occurrence: US)
  Receive Date: 20220731
  Receipt Date: 20220731
  Transmission Date: 20221026
  Serious: No
  Sender: FDA-Public Use
  Company Number: US-SA-SAC20220726000358

PATIENT
  Sex: Male

DRUGS (1)
  1. DUPIXENT [Suspect]
     Active Substance: DUPILUMAB
     Indication: Dermatitis atopic
     Dosage: 300MG/ML, FREQUENCY: ONCE EVERY ROUTE: INJECT UNDO
     Route: 065
     Dates: start: 20220531

REACTIONS (1)
  - Arthralgia [Not Recovered/Not Resolved]
